FAERS Safety Report 18245604 (Version 2)
Quarter: 2025Q3

REPORT INFORMATION
  Report Type: Spontaneous
  Country: EU (occurrence: EU)
  Receive Date: 20200909
  Receipt Date: 20250815
  Transmission Date: 20251021
  Serious: Yes (Hospitalization, Other)
  Sender: AUROBINDO
  Company Number: EU-AUROBINDO-AUR-APL-2017-07054

PATIENT
  Age: 34 Year
  Sex: Male
  Weight: 62 kg

DRUGS (19)
  1. AZITHROMYCIN [Interacting]
     Active Substance: AZITHROMYCIN
     Indication: Bronchiolitis
     Dosage: 250 MILLIGRAM, ONCE A DAY
     Route: 065
  2. PRAVASTATIN [Interacting]
     Active Substance: PRAVASTATIN
     Indication: Coronary artery disease
     Dosage: 20 MILLIGRAM, ONCE A DAY
     Route: 065
  3. COLCHICINE [Interacting]
     Active Substance: COLCHICINE
     Indication: Gouty arthritis
     Dosage: 1 MILLIGRAM, 3 TIMES A DAY ON THE DAY
     Route: 065
  4. COLCHICINE [Interacting]
     Active Substance: COLCHICINE
     Dosage: 1 MILLIGRAM, TWO TIMES A DAY ON THE 2ND AND 3RD DAY
     Route: 065
  5. COLCHICINE [Interacting]
     Active Substance: COLCHICINE
     Dosage: 1 MILLIGRAM, ONCE A DAY
     Route: 065
  6. CYCLOSPORINE [Interacting]
     Active Substance: CYCLOSPORINE
     Indication: Prophylaxis against transplant rejection
     Dosage: 170 MILLIGRAM, TWO TIMES A DAY
     Route: 065
  7. HYDROCORTISONE [Concomitant]
     Active Substance: HYDROCORTISONE
     Indication: Product used for unknown indication
     Dosage: 20 MILLIGRAM, ONCE A DAY
     Route: 065
  8. EVEROLIMUS [Concomitant]
     Active Substance: EVEROLIMUS
     Indication: Product used for unknown indication
     Dosage: 1 MILLIGRAM, ONCE A DAY
     Route: 065
  9. NICORANDIL [Concomitant]
     Active Substance: NICORANDIL
     Indication: Coronary artery disease
     Dosage: 10 MILLIGRAM, ONCE A DAY
     Route: 065
  10. IRBESARTAN [Concomitant]
     Active Substance: IRBESARTAN
     Indication: Coronary artery disease
     Dosage: 150 MILLIGRAM, ONCE A DAY
     Route: 065
  11. LYSINE ACETYLSALICYLATE [Concomitant]
     Active Substance: ASPIRIN DL-LYSINE
     Indication: Coronary artery disease
     Dosage: 75 MILLIGRAM, ONCE A DAY
     Route: 065
  12. FERROUS ASCORBATE [Concomitant]
     Active Substance: FERROUS ASCORBATE
     Indication: Product used for unknown indication
     Dosage: 66 MILLIGRAM, ONCE A DAY
     Route: 065
  13. COTRIMOXAZOLE [Concomitant]
     Active Substance: SULFAMETHOXAZOLE\TRIMETHOPRIM
     Indication: Product used for unknown indication
     Dosage: 3 DOSAGE FORM, EVERY WEEK
     Route: 065
  14. CALCIUM [Concomitant]
     Active Substance: CALCIUM
     Indication: Product used for unknown indication
     Dosage: 1 GRAM, ONCE A DAY
     Route: 065
  15. CHOLECALCIFEROL [Concomitant]
     Active Substance: CHOLECALCIFEROL
     Indication: Product used for unknown indication
     Dosage: 880 INTERNATIONAL UNIT, ONCE A DAY
     Route: 065
  16. PANCREATIN [Concomitant]
     Active Substance: PANCRELIPASE
     Indication: Product used for unknown indication
     Dosage: 250000 INTERNATIONAL UNIT, ONCE A DAY
     Route: 065
  17. ESOMEPRAZOLE [Concomitant]
     Active Substance: ESOMEPRAZOLE
     Indication: Product used for unknown indication
     Route: 065
  18. COLISTIMETHATE SODIUM [Concomitant]
     Active Substance: COLISTIMETHATE SODIUM
     Indication: Bronchiolitis
     Route: 065
  19. TOCOPHEROL [Concomitant]
     Active Substance: TOCOPHEROL
     Indication: Product used for unknown indication
     Route: 065

REACTIONS (19)
  - Renal failure [Recovering/Resolving]
  - Left ventricular failure [Recovering/Resolving]
  - Acute respiratory failure [Recovering/Resolving]
  - Multiple organ dysfunction syndrome [Recovering/Resolving]
  - Rhabdomyolysis [Recovered/Resolved]
  - Pulmonary oedema [Recovered/Resolved]
  - Cardiac failure [Recovered/Resolved]
  - Haemoptysis [Recovered/Resolved]
  - Hepatic cytolysis [Recovered/Resolved]
  - Diarrhoea [Unknown]
  - Lymphopenia [Unknown]
  - Leukocytosis [Unknown]
  - General physical health deterioration [Unknown]
  - Drug level increased [Unknown]
  - Cough [Recovering/Resolving]
  - Toxicity to various agents [Recovered/Resolved]
  - Dyspnoea [Recovering/Resolving]
  - Drug interaction [Recovered/Resolved]
  - Abdominal discomfort [Unknown]

NARRATIVE: CASE EVENT DATE: 20090101
